FAERS Safety Report 4685055-1 (Version None)
Quarter: 2005Q2

REPORT INFORMATION
  Report Type: 
  Country: None (occurrence: None)
  Receive Date: 20050603
  Receipt Date: 20050527
  Transmission Date: 20051028
  Serious: Yes (Death)
  Sender: FDA-Public Use
  Company Number: TCI2005A02585

PATIENT
  Sex: Male

DRUGS (3)
  1. ACTOS [Suspect]
     Indication: DIABETES MELLITUS
     Dosage: 15 MG (15 MG,1 D), PER ORAL
     Route: 048
     Dates: start: 20020805, end: 20021020
  2. BLOPRESS (CANDESARTAN CILEXETIL) [Concomitant]
  3. AMARYL [Concomitant]

REACTIONS (5)
  - ALANINE AMINOTRANSFERASE INCREASED [None]
  - ASPARTATE AMINOTRANSFERASE INCREASED [None]
  - BILE DUCT CANCER [None]
  - BILE DUCT OBSTRUCTION [None]
  - GAMMA-GLUTAMYLTRANSFERASE INCREASED [None]
